FAERS Safety Report 13302590 (Version 2)
Quarter: 2017Q1

REPORT INFORMATION
  Report Type: Report from Study
  Country: CO (occurrence: CO)
  Receive Date: 20170307
  Receipt Date: 20170313
  Transmission Date: 20170428
  Serious: Yes (Other)
  Sender: FDA-Public Use
  Company Number: CO-JNJFOC-20170305768

PATIENT
  Age: 29 Year
  Sex: Male
  Weight: 78 kg

DRUGS (1)
  1. INVEGA SUSTENNA [Suspect]
     Active Substance: PALIPERIDONE PALMITATE
     Indication: SCHIZOPHRENIA
     Route: 030
     Dates: start: 20160405

REACTIONS (2)
  - Ear pain [Recovering/Resolving]
  - Otorrhoea [Recovering/Resolving]

NARRATIVE: CASE EVENT DATE: 20170103
